FAERS Safety Report 6817605-0 (Version None)
Quarter: 2010Q3

REPORT INFORMATION
  Report Type: 
  Country: None (occurrence: None)
  Receive Date: 20100706
  Receipt Date: 20100624
  Transmission Date: 20110219
  Serious: Yes (Hospitalization)
  Sender: FDA-Public Use
  Company Number: SE-ASTRAZENECA-2010SE29492

PATIENT
  Age: 79 Year
  Sex: Male

DRUGS (8)
  1. NEXIUM [Suspect]
     Route: 048
  2. AMOXICILLIN [Interacting]
  3. CLARITHROMYCIN [Interacting]
  4. WARAN [Interacting]
     Indication: CARDIAC FAILURE
     Dosage: 2.5 MGS
     Route: 048
  5. WARAN [Interacting]
     Indication: CHRONIC OBSTRUCTIVE PULMONARY DISEASE
     Dosage: 2.5 MGS
     Route: 048
  6. WARAN [Interacting]
     Indication: ATRIAL FIBRILLATION
     Dosage: 2.5 MGS
     Route: 048
  7. SELOKEN [Concomitant]
  8. RAMIPRIL [Concomitant]

REACTIONS (3)
  - DRUG INTERACTION [None]
  - HAEMATOMA [None]
  - INTERNATIONAL NORMALISED RATIO INCREASED [None]
